FAERS Safety Report 8445299-X (Version None)
Quarter: 2012Q2

REPORT INFORMATION
  Report Type: 
  Country: None (occurrence: None)
  Receive Date: 20120612
  Receipt Date: 20120612
  Transmission Date: 20120825
  Serious: Yes (Hospitalization, Other)
  Sender: FDA-Public Use
  Company Number: None

PATIENT
  Sex: Female

DRUGS (2)
  1. VICODIN [Suspect]
     Indication: TOOTHACHE
     Dosage: 1PILL PO 1 TIME
     Route: 048
  2. SEROQUEL [Suspect]
     Dosage: EVERY DAY PO YEARS
     Route: 048

REACTIONS (3)
  - WEIGHT INCREASED [None]
  - DISORIENTATION [None]
  - MALAISE [None]
